FAERS Safety Report 8082767-7 (Version None)
Quarter: 2012Q1

REPORT INFORMATION
  Report Type: 
  Country: None (occurrence: None)
  Receive Date: 20120127
  Receipt Date: 20110209
  Transmission Date: 20120608
  Serious: No
  Sender: FDA-Public Use
  Company Number: US-ABBOTT-11P-163-0703958-00

PATIENT
  Age: 57 Year
  Sex: Male

DRUGS (5)
  1. NEXIUM [Concomitant]
     Indication: GASTROOESOPHAGEAL REFLUX DISEASE
  2. PLAQUENIL [Concomitant]
     Indication: ARTHRITIS
  3. FOLBIC [Concomitant]
     Indication: PRODUCT USED FOR UNKNOWN INDICATION
  4. HUMIRA [Suspect]
     Indication: PSORIATIC ARTHROPATHY
     Dates: start: 20100801
  5. HUMIRA [Suspect]
     Dates: start: 20110128

REACTIONS (3)
  - NASOPHARYNGITIS [None]
  - NASAL CONGESTION [None]
  - THROAT IRRITATION [None]
